FAERS Safety Report 11784679 (Version 7)
Quarter: 2016Q3

REPORT INFORMATION
  Report Type: Report from Study
  Country: US (occurrence: US)
  Receive Date: 20151130
  Receipt Date: 20160810
  Transmission Date: 20161109
  Serious: Yes (Other)
  Sender: FDA-Public Use
  Company Number: US-AMGEN-USASL2015124897

PATIENT
  Age: 54 Year
  Sex: Female

DRUGS (1)
  1. ENBREL [Suspect]
     Active Substance: ETANERCEPT
     Indication: ANKYLOSING SPONDYLITIS
     Dosage: 50 MG, ONCE WEEKLY
     Route: 065
     Dates: start: 20151122, end: 201603

REACTIONS (21)
  - Rheumatoid arthritis [Unknown]
  - Drug ineffective [Unknown]
  - Vomiting [Recovered/Resolved]
  - Migraine [Recovered/Resolved]
  - Device use error [Unknown]
  - Device issue [Unknown]
  - Injection site erythema [Unknown]
  - Injection site pain [Unknown]
  - Malaise [Unknown]
  - Feeling abnormal [Unknown]
  - Underdose [Unknown]
  - Injection site mass [Unknown]
  - Injection site reaction [Unknown]
  - Ankylosing spondylitis [Unknown]
  - Fibromyalgia [Unknown]
  - Adverse drug reaction [Unknown]
  - Device malfunction [Unknown]
  - Injection site bruising [Unknown]
  - Headache [Unknown]
  - Nausea [Unknown]
  - Injection site discolouration [Unknown]

NARRATIVE: CASE EVENT DATE: 2015
